FAERS Safety Report 12622488 (Version 1)
Quarter: 2016Q3

REPORT INFORMATION
  Report Type: Spontaneous
  Country: US (occurrence: US)
  Receive Date: 20160804
  Receipt Date: 20160804
  Transmission Date: 20161109
  Serious: No
  Sender: FDA-Public Use
  Company Number: US-TEVA-677728USA

PATIENT
  Age: 59 Year
  Sex: Female

DRUGS (26)
  1. COPAXONE [Suspect]
     Active Substance: GLATIRAMER ACETATE
     Route: 058
     Dates: start: 201511
  2. LORAZEPAM. [Concomitant]
     Active Substance: LORAZEPAM
  3. IBUPROFEN. [Concomitant]
     Active Substance: IBUPROFEN
  4. VENTOLIN HFA [Concomitant]
     Active Substance: ALBUTEROL SULFATE
  5. MONTELUKAST [Concomitant]
     Active Substance: MONTELUKAST SODIUM
  6. OMEPRAZOLE. [Concomitant]
     Active Substance: OMEPRAZOLE
  7. ANUCORT-HC [Concomitant]
     Active Substance: HYDROCORTISONE ACETATE
  8. FLUTICASONE [Concomitant]
     Active Substance: FLUTICASONE\FLUTICASONE PROPIONATE
  9. DIAZEPAM. [Concomitant]
     Active Substance: DIAZEPAM
  10. COLACE [Concomitant]
     Active Substance: DOCUSATE SODIUM
  11. MAGNESIUM [Concomitant]
     Active Substance: MAGNESIUM
  12. ALLOPURINOL. [Concomitant]
     Active Substance: ALLOPURINOL
  13. ALBUTEROL NEB [Concomitant]
     Dosage: 0.083%
  14. IPRATROPIUM/SOLALBUTER [Concomitant]
     Route: 065
  15. SPIRIVA [Concomitant]
     Active Substance: TIOTROPIUM BROMIDE MONOHYDRATE
  16. LISINOPRIL. [Concomitant]
     Active Substance: LISINOPRIL
     Route: 065
  17. PROCTOFOAM HER HC 1% [Concomitant]
  18. ANASTROZOLE. [Concomitant]
     Active Substance: ANASTROZOLE
  19. VITAMIN D [Concomitant]
     Active Substance: CHOLECALCIFEROL
  20. ATORVASTATIN [Concomitant]
     Active Substance: ATORVASTATIN
  21. GABAPENTIN. [Concomitant]
     Active Substance: GABAPENTIN
  22. HYDROCHLOROTHIAZIDE. [Concomitant]
     Active Substance: HYDROCHLOROTHIAZIDE
  23. MELOXICAM. [Concomitant]
     Active Substance: MELOXICAM
  24. LINZESS [Concomitant]
     Active Substance: LINACLOTIDE
  25. NYSTATIN. [Concomitant]
     Active Substance: NYSTATIN
  26. FISH OIL [Concomitant]
     Active Substance: FISH OIL

REACTIONS (4)
  - Fatigue [Unknown]
  - Asthenia [Unknown]
  - Arthralgia [Unknown]
  - Pain in extremity [Unknown]

NARRATIVE: CASE EVENT DATE: 201605
